FAERS Safety Report 7591915-4 (Version None)
Quarter: 2011Q3

REPORT INFORMATION
  Report Type: 
  Country: None (occurrence: None)
  Receive Date: 20110706
  Receipt Date: 20110628
  Transmission Date: 20111222
  Serious: Yes (Death, Hospitalization, Other)
  Sender: FDA-Public Use
  Company Number: CZ-ASTELLAS-2011US003494

PATIENT
  Sex: Male
  Weight: 97 kg

DRUGS (1)
  1. TARCEVA [Suspect]
     Indication: METASTASES TO CENTRAL NERVOUS SYSTEM
     Dosage: 150 MG, UID/QD
     Route: 048
     Dates: start: 20090201

REACTIONS (20)
  - PULMONARY OEDEMA [None]
  - ATELECTASIS [None]
  - NAUSEA [None]
  - DISORIENTATION [None]
  - DISTURBANCE IN ATTENTION [None]
  - RASH PAPULAR [None]
  - DIARRHOEA [None]
  - MALAISE [None]
  - OXYGEN SATURATION [None]
  - SPINAL FRACTURE [None]
  - FATIGUE [None]
  - ORAL DISORDER [None]
  - HEADACHE [None]
  - ATROPHY [None]
  - CHEST PAIN [None]
  - DISEASE PROGRESSION [None]
  - VERTIGO [None]
  - PURULENT DISCHARGE [None]
  - RESTLESSNESS [None]
  - SKIN EXFOLIATION [None]
